FAERS Safety Report 10209986 (Version 2)
Quarter: 2014Q2

REPORT INFORMATION
  Report Type: Spontaneous
  Country: FR (occurrence: FR)
  Receive Date: 20140602
  Receipt Date: 20140606
  Transmission Date: 20141212
  Serious: Yes (Life-Threatening, Hospitalization)
  Sender: FDA-Public Use
  Company Number: FR-JNJFOC-20140512331

PATIENT
  Age: 86 Year
  Sex: Female

DRUGS (8)
  1. DOXORUBICIN HYDROCHLORIDE (CAELYX) [Suspect]
     Indication: KAPOSI^S SARCOMA
     Route: 042
     Dates: start: 20140416, end: 20140416
  2. ZOPHREN [Concomitant]
     Indication: PREMEDICATION
     Route: 065
     Dates: start: 20140416
  3. NOVATREX (METHOTREXATE) [Concomitant]
     Route: 065
  4. CORTANCYL [Concomitant]
     Route: 065
  5. INEXIUM [Concomitant]
     Route: 065
     Dates: start: 2008
  6. ATENOLOL [Concomitant]
     Route: 065
     Dates: start: 2002
  7. TARDYFERON B9 NOS [Concomitant]
     Route: 065
  8. CACIT D3 [Concomitant]
     Route: 065

REACTIONS (6)
  - Cyanosis [Recovered/Resolved]
  - Hypoxia [Recovered/Resolved]
  - Erythema [Recovered/Resolved]
  - Altered state of consciousness [Recovered/Resolved]
  - Respiratory distress [Recovered/Resolved]
  - Infusion related reaction [Recovered/Resolved]
